FAERS Safety Report 9646755 (Version 1)
Quarter: 2013Q4

REPORT INFORMATION
  Report Type: Spontaneous
  Country: US (occurrence: US)
  Receive Date: 20131027
  Receipt Date: 20131027
  Transmission Date: 20140711
  Serious: No
  Sender: FDA-Public Use
  Company Number: US-PURDUE-USA-2013-0103843

PATIENT
  Sex: Female

DRUGS (2)
  1. OXYCONTIN TABLETS [Suspect]
     Indication: ARTHRALGIA
     Dosage: 20 MG, SEE TEXT
     Dates: start: 2008
  2. OXYCONTIN TABLETS [Suspect]
     Indication: PAIN IN EXTREMITY

REACTIONS (3)
  - Dyspnoea [Not Recovered/Not Resolved]
  - Pruritus [Unknown]
  - Urticaria [Unknown]
